FAERS Safety Report 8055841 (Version 7)
Quarter: 2012Q4

REPORT INFORMATION
  Report Type: 
  Country: GB (occurrence: GB)
  Receive Date: 20110726
  Receipt Date: 20121002
  Transmission Date: 20130627
  Serious: Yes (Death, Hospitalization)
  Sender: FDA-Public Use
  Company Number: PHHY2011GB65915

PATIENT
  Age: 68 Year
  Sex: Female

DRUGS (11)
  1. DICLOFENAC [Suspect]
     Indication: OSTEOARTHRITIS
     Dosage: 50 mg, TID
     Route: 048
     Dates: start: 20080708, end: 20110531
  2. AMITRIPTYLINE [Concomitant]
     Dosage: 10 mg, once daily
     Dates: start: 20050614
  3. GABAPENTIN [Concomitant]
     Indication: NEURALGIA
     Dosage: 300 mg, 6QD
     Dates: start: 20060126
  4. CO-CODAMOL [Concomitant]
     Indication: NEURALGIA
     Dosage: UNK UKN, UNK
     Dates: start: 20060227
  5. CO-CODAMOL [Concomitant]
     Indication: OSTEOARTHRITIS
  6. CO-CODAMOL [Concomitant]
     Indication: SPINAL OSTEOARTHRITIS
  7. TRAMADOL [Concomitant]
     Indication: NEURALGIA
     Dosage: 50 mg, 6QD
     Dates: start: 20060320
  8. ALENDRONIC ACID [Concomitant]
     Indication: OSTEOARTHRITIS
     Dosage: 70 mg, QW
     Dates: start: 20091130
  9. ALENDRONIC ACID [Concomitant]
     Indication: OSTEOPENIA
  10. TRIAMCINOLONE ACETONIDE [Concomitant]
     Indication: OSTEOARTHRITIS
     Dosage: UNK UKN, UNK
     Route: 030
     Dates: start: 20090914, end: 20110505
  11. ESTRADIOL [Concomitant]
     Dosage: 25 ug, UNK
     Dates: start: 20010927

REACTIONS (11)
  - Colitis ischaemic [Fatal]
  - Diarrhoea [Fatal]
  - Abdominal pain [Fatal]
  - Abdominal tenderness [Fatal]
  - Fatigue [Fatal]
  - Malaise [Fatal]
  - Haematochezia [Fatal]
  - Abdominal rigidity [Fatal]
  - Chronic obstructive pulmonary disease [Fatal]
  - Enteritis [Unknown]
  - Intestinal perforation [Unknown]
